FAERS Safety Report 4611863-9 (Version None)
Quarter: 2005Q1

REPORT INFORMATION
  Report Type: 
  Country: None (occurrence: None)
  Receive Date: 20050316
  Receipt Date: 20050308
  Transmission Date: 20050727
  Serious: Yes (Life-Threatening, Hospitalization)
  Sender: FDA-Public Use
  Company Number: 2003US005646

PATIENT
  Age: 8 Month
  Sex: Male
  Weight: 9.3 kg

DRUGS (1)
  1. PROTOPIC [Suspect]
     Indication: DERMATITIS ATOPIC
     Dosage: BID, TOPICAL
     Route: 061

REACTIONS (14)
  - CARDIAC ARREST [None]
  - CENTRAL LINE INFECTION [None]
  - CEREBRAL ATROPHY [None]
  - CONDITION AGGRAVATED [None]
  - DRUG LEVEL INCREASED [None]
  - GENERAL PHYSICAL HEALTH DETERIORATION [None]
  - HERPES VIRUS INFECTION [None]
  - HYPERNATRAEMIA [None]
  - HYPERREFLEXIA [None]
  - HYPOTHERMIA [None]
  - INJECTION SITE ABSCESS [None]
  - IRRITABILITY [None]
  - NEUROLOGICAL SYMPTOM [None]
  - PSEUDOMONAL SEPSIS [None]
